FAERS Safety Report 4737198-1 (Version None)
Quarter: 2005Q3

REPORT INFORMATION
  Report Type: 
  Country: None (occurrence: None)
  Receive Date: 20050808
  Receipt Date: 20050310
  Transmission Date: 20060218
  Serious: Yes (Hospitalization, Disabling, Other)
  Sender: FDA-Public Use
  Company Number: US-MERCK-0503USA01920

PATIENT
  Age: 63 Year
  Sex: Male
  Weight: 68 kg

DRUGS (7)
  1. VIOXX [Suspect]
     Indication: ARTHRALGIA
     Route: 048
     Dates: start: 20021002, end: 20040920
  2. PRAVACHOL [Concomitant]
     Indication: BLOOD CHOLESTEROL INCREASED
     Route: 065
  3. ASPIRIN [Concomitant]
     Route: 065
  4. GLYBURIDE AND METFORMIN HYDROCHLORIDE [Concomitant]
     Indication: DIABETES MELLITUS
     Route: 065
  5. GLYBURIDE AND METFORMIN HYDROCHLORIDE [Concomitant]
     Route: 065
  6. PRILOSEC [Concomitant]
     Indication: GASTRIC PH DECREASED
     Route: 048
  7. OMEPRAZOLE [Concomitant]
     Route: 048

REACTIONS (7)
  - ANKLE FRACTURE [None]
  - AORTIC VALVE SCLEROSIS [None]
  - BACK PAIN [None]
  - CEREBROVASCULAR ACCIDENT [None]
  - EMOTIONAL DISTRESS [None]
  - HYPERSENSITIVITY [None]
  - VENTRICULAR HYPERTROPHY [None]
